FAERS Safety Report 20411020 (Version 2)
Quarter: 2022Q1

REPORT INFORMATION
  Report Type: Spontaneous
  Country: US (occurrence: US)
  Receive Date: 20220201
  Receipt Date: 20220216
  Transmission Date: 20220424
  Serious: Yes (Other)
  Sender: FDA-Public Use
  Company Number: US-AMGEN-USASP2022012774

PATIENT
  Age: 69 Year
  Sex: Male

DRUGS (1)
  1. REPATHA [Suspect]
     Active Substance: EVOLOCUMAB
     Indication: Blood cholesterol abnormal
     Dosage: 140 MILLIGRAM
     Route: 065

REACTIONS (4)
  - Retinal oedema [Unknown]
  - Retinal haemorrhage [Unknown]
  - Renal pain [Unknown]
  - Back pain [Unknown]

NARRATIVE: CASE EVENT DATE: 20210101
